FAERS Safety Report 4445069-3 (Version None)
Quarter: 2004Q3

REPORT INFORMATION
  Report Type: 
  Country: None (occurrence: None)
  Receive Date: 20040903
  Receipt Date: 20040819
  Transmission Date: 20050211
  Serious: No
  Sender: FDA-Public Use
  Company Number: 207846

PATIENT
  Age: 62 Year
  Sex: Female
  Weight: 80.4 kg

DRUGS (1)
  1. XOLAIR [Suspect]
     Dosage: 150 MG, 1/MONTH, SUBCUTANEOUS
     Route: 058
     Dates: start: 20040205

REACTIONS (2)
  - COLON ADENOMA [None]
  - COLONIC POLYP [None]
